FAERS Safety Report 7586952 (Version 2)
Quarter: 2012Q4

REPORT INFORMATION
  Report Type: 
  Country: JP (occurrence: JP)
  Receive Date: 20100915
  Receipt Date: 20121126
  Transmission Date: 20130627
  Serious: Yes (Hospitalization)
  Sender: FDA-Public Use
  Company Number: JP-BAYER-201011550BYL

PATIENT
  Age: 58 Year
  Sex: Male
  Weight: 81.5 kg

DRUGS (8)
  1. NEXAVAR [Suspect]
     Indication: CARCINOMA HEPATOCELLULAR
     Route: 048
     Dates: start: 20100323
  2. HERLAT [Concomitant]
     Dosage: 40 mg (Daily Dose), , oral
     Route: 048
     Dates: start: 20100419
  3. PARIET [Concomitant]
     Dosage: 10 mg (Daily Dose), , oral
     Route: 048
     Dates: start: 200803
  4. FOSAMAC [Concomitant]
     Route: 048
     Dates: start: 200803
  5. PROMAC [POLAPREZINC] [Concomitant]
     Dosage: 150 mg (Daily Dose), , oral
     Route: 048
     Dates: start: 20100315
  6. PREDONINE [Concomitant]
     Dosage: 14 mg (Daily Dose), , oral
     Route: 048
     Dates: start: 200803
  7. HUMALOG MIX [Concomitant]
     Dosage: 18 u (Daily Dose), , subcutaneous
     Route: 058
     Dates: start: 200803
  8. LIPITOR [Concomitant]
     Dosage: 10 mg (Daily Dose), , oral
     Route: 048
     Dates: start: 20100415, end: 20100802

REACTIONS (4)
  - Palmar-plantar erythrodysaesthesia syndrome [Unknown]
  - Blood creatine phosphokinase increased [Unknown]
  - Hypertension [None]
  - Diarrhoea [None]
